FAERS Safety Report 9267062 (Version 1)
Quarter: 2013Q2

REPORT INFORMATION
  Report Type: Spontaneous
  Country: US (occurrence: US)
  Receive Date: 20130502
  Receipt Date: 20130502
  Transmission Date: 20140414
  Serious: No
  Sender: FDA-Public Use
  Company Number: US-PFIZER INC-2013133413

PATIENT
  Age: 48 Year
  Sex: Female
  Weight: 138 kg

DRUGS (1)
  1. ZYVOX [Suspect]
     Indication: BACTERIAL INFECTION
     Dosage: 600 MG, 3X/DAY
     Dates: start: 20130415, end: 20130418

REACTIONS (3)
  - Gastroenteritis viral [Recovered/Resolved]
  - Diarrhoea [Recovered/Resolved]
  - Vomiting [Recovered/Resolved]
